FAERS Safety Report 10871096 (Version 1)
Quarter: 2015Q1

REPORT INFORMATION
  Report Type: Spontaneous
  Country: FR (occurrence: FR)
  Receive Date: 20150226
  Receipt Date: 20150226
  Transmission Date: 20150721
  Serious: Yes (Life-Threatening)
  Sender: FDA-Public Use
  Company Number: FR-EISAI MEDICAL RESEARCH-EC-2015-004053

PATIENT
  Age: 12 Year
  Sex: Female
  Weight: 56 kg

DRUGS (4)
  1. MICROPAKINE [Concomitant]
     Active Substance: VALPROIC ACID
     Indication: EPILEPSY
     Route: 048
  2. FYCOMPA [Suspect]
     Active Substance: PERAMPANEL
     Route: 048
  3. FYCOMPA [Suspect]
     Active Substance: PERAMPANEL
     Indication: EPILEPSY
     Route: 048
  4. TRILEPTAL [Concomitant]
     Active Substance: OXCARBAZEPINE
     Indication: EPILEPSY
     Route: 048
     Dates: start: 2013

REACTIONS (6)
  - Nervousness [Unknown]
  - Suicidal ideation [Recovering/Resolving]
  - Depressed mood [Unknown]
  - Agitation [Unknown]
  - Aggression [Unknown]
  - Personality change [Unknown]
